FAERS Safety Report 8319323-9 (Version None)
Quarter: 2012Q2

REPORT INFORMATION
  Report Type: 
  Country: None (occurrence: None)
  Receive Date: 20120427
  Receipt Date: 20120418
  Transmission Date: 20120825
  Serious: No
  Sender: FDA-Public Use
  Company Number: US-BAYER-2012-039277

PATIENT
  Age: 78 Year
  Sex: Male
  Weight: 78 kg

DRUGS (3)
  1. ALEVE [Suspect]
     Dosage: 2 U, UNK
     Route: 048
     Dates: end: 20120418
  2. IBUPROFEN [Concomitant]
  3. IBUPROFEN (ADVIL) [Concomitant]

REACTIONS (1)
  - DRUG INEFFECTIVE [None]
